FAERS Safety Report 6328756-1 (Version None)
Quarter: 2009Q3

REPORT INFORMATION
  Report Type: 
  Country: None (occurrence: None)
  Receive Date: 20090824
  Receipt Date: 20090824
  Transmission Date: 20100115
  Serious: No
  Sender: FDA-Public Use
  Company Number: None

PATIENT
  Age: 22 Year
  Sex: Female
  Weight: 79.3795 kg

DRUGS (1)
  1. IMPLANON [Suspect]

REACTIONS (2)
  - NO THERAPEUTIC RESPONSE [None]
  - VAGINAL HAEMORRHAGE [None]
